FAERS Safety Report 19882889 (Version 1)
Quarter: 2021Q3

REPORT INFORMATION
  Report Type: Spontaneous
  Country: DE (occurrence: DE)
  Receive Date: 20210924
  Receipt Date: 20210924
  Transmission Date: 20211014
  Serious: Yes (Disabling, Other)
  Sender: FDA-Public Use
  Company Number: DE-ABBVIE-21K-062-4092697-00

PATIENT
  Sex: Male
  Weight: 87 kg

DRUGS (1)
  1. ERGENYL CHRONO [Suspect]
     Active Substance: VALPROIC ACID
     Indication: CYCLOTHYMIC DISORDER
     Dosage: 500MG, BID
     Route: 048
     Dates: start: 2017, end: 201802

REACTIONS (3)
  - Insomnia [Not Recovered/Not Resolved]
  - Tinnitus [Not Recovered/Not Resolved]
  - Auditory disorder [Not Recovered/Not Resolved]
